FAERS Safety Report 9338436 (Version 1)
Quarter: 2013Q2

REPORT INFORMATION
  Report Type: Spontaneous
  Country: US (occurrence: US)
  Receive Date: 20130610
  Receipt Date: 20130610
  Transmission Date: 20140414
  Serious: Yes (Other)
  Sender: FDA-Public Use
  Company Number: US-PFIZER INC-2013173392

PATIENT
  Age: 33 Year
  Sex: Female
  Weight: 103.86 kg

DRUGS (5)
  1. GABAPENTIN [Suspect]
     Indication: FIBROMYALGIA
     Dosage: 300 MG, 2X/DAY
     Route: 048
     Dates: start: 2012
  2. GABAPENTIN [Suspect]
     Dosage: 300 MG, 3X/DAY
     Route: 048
  3. TRAMADOL [Concomitant]
     Dosage: UNK
  4. TRAZODONE [Concomitant]
     Dosage: UNK
  5. VICODIN [Concomitant]
     Indication: PAIN
     Dosage: UNK, AS NEEDED

REACTIONS (3)
  - Weight increased [Unknown]
  - Off label use [Unknown]
  - Drug ineffective for unapproved indication [Unknown]
